FAERS Safety Report 26107718 (Version 1)
Quarter: 2025Q4

REPORT INFORMATION
  Report Type: Report from Study
  Country: US (occurrence: US)
  Receive Date: 20251201
  Receipt Date: 20251201
  Transmission Date: 20260117
  Serious: Yes (Other)
  Sender: ABBVIE
  Company Number: US-ABBVIE-6556157

PATIENT
  Age: 66 Year
  Sex: Male

DRUGS (1)
  1. CREON [Suspect]
     Active Substance: PANCRELIPASE AMYLASE\PANCRELIPASE LIPASE\PANCRELIPASE PROTEASE
     Indication: Product used for unknown indication
     Route: 048
     Dates: start: 20250701

REACTIONS (7)
  - Gastric operation [Unknown]
  - Faeces soft [Unknown]
  - Flatulence [Unknown]
  - Intestinal operation [Unknown]
  - Liver operation [Unknown]
  - Gallbladder operation [Unknown]
  - Oesophageal operation [Unknown]

NARRATIVE: CASE EVENT DATE: 20250101
